FAERS Safety Report 24641715 (Version 1)
Quarter: 2024Q4

REPORT INFORMATION
  Report Type: Spontaneous
  Country: US (occurrence: None)
  Receive Date: 20241120
  Receipt Date: 20241120
  Transmission Date: 20250115
  Serious: No
  Sender: Public
  Company Number: None

PATIENT
  Age: 77 Year
  Sex: Male
  Weight: 104.8 kg

DRUGS (2)
  1. CASODEX [Suspect]
     Active Substance: BICALUTAMIDE
     Dates: end: 20190703
  2. LEUPROLIDE ACETATE [Suspect]
     Active Substance: LEUPROLIDE ACETATE
     Dates: end: 20201228

REACTIONS (5)
  - Urethral stenosis [None]
  - Urinary retention [None]
  - Urinary tract procedural complication [None]
  - Procedural failure [None]
  - Haematuria [None]

NARRATIVE: CASE EVENT DATE: 20240222
